FAERS Safety Report 4738936-4 (Version None)
Quarter: 2005Q3

REPORT INFORMATION
  Report Type: 
  Country: None (occurrence: None)
  Receive Date: 20050801
  Receipt Date: 20041229
  Transmission Date: 20060218
  Serious: No
  Sender: FDA-Public Use
  Company Number: 211049

PATIENT
  Age: 47 Year
  Sex: Female
  Weight: 77.1 kg

DRUGS (3)
  1. HERCEPTIN [Suspect]
     Indication: BREAST CANCER
     Dosage: 300 MG, SINGLE, INTRAVENOUS;  150 MG, 1/WEEK, INTRAVENOUS
     Route: 042
     Dates: start: 20041101
  2. HERCEPTIN [Suspect]
     Indication: BREAST CANCER
     Dosage: 300 MG, SINGLE, INTRAVENOUS;  150 MG, 1/WEEK, INTRAVENOUS
     Route: 042
     Dates: start: 20041105
  3. TAXOTERE [Concomitant]

REACTIONS (1)
  - RASH MACULO-PAPULAR [None]
